FAERS Safety Report 7883371-3 (Version None)
Quarter: 2011Q4

REPORT INFORMATION
  Report Type: 
  Country: None (occurrence: None)
  Receive Date: 20111102
  Receipt Date: 20111102
  Transmission Date: 20120403
  Serious: Yes (Disabling)
  Sender: FDA-Public Use
  Company Number: None

PATIENT
  Age: 52 Year
  Sex: Female
  Weight: 55.791 kg

DRUGS (1)
  1. BACTRIM DS [Suspect]
     Indication: OTITIS EXTERNA
     Route: 048
     Dates: start: 20111019, end: 20111029

REACTIONS (1)
  - DRUG HYPERSENSITIVITY [None]
